FAERS Safety Report 21241082 (Version 1)
Quarter: 2022Q3

REPORT INFORMATION
  Report Type: Report from Study
  Country: CA (occurrence: CA)
  Receive Date: 20220823
  Receipt Date: 20220823
  Transmission Date: 20221026
  Serious: Yes (Hospitalization)
  Sender: FDA-Public Use
  Company Number: CA-ABBVIE-22K-028-4512605-00

PATIENT
  Sex: Male

DRUGS (1)
  1. HUMIRA [Suspect]
     Active Substance: ADALIMUMAB
     Indication: Psoriasis
     Dosage: 1 INJECTION
     Route: 058
     Dates: start: 20220723

REACTIONS (1)
  - Accident [Unknown]

NARRATIVE: CASE EVENT DATE: 20220101
